FAERS Safety Report 14999385 (Version 2)
Quarter: 2018Q2

REPORT INFORMATION
  Report Type: Spontaneous
  Country: US (occurrence: US)
  Receive Date: 20180612
  Receipt Date: 20180625
  Transmission Date: 20180711
  Serious: No
  Sender: FDA-Public Use
  Company Number: US-PFIZER INC-2018235830

PATIENT
  Age: 54 Year
  Sex: Female

DRUGS (4)
  1. NEOMYCIN AND POLYMYXIN B SULFATES AND HYDROCO [Concomitant]
     Active Substance: HYDROCORTISONE\NEOMYCIN SULFATE\POLYMYXIN B SULFATE
     Dosage: UNK, AS NEEDED, (HYDROCORTISONE - 1%)/(NEOMYCIN SULFATE - 3.5 MG)/(POLYMYXIN B SULFATE - 10,000 UNIT
  2. CLINDAGEL [Concomitant]
     Active Substance: CLINDAMYCIN PHOSPHATE
     Dosage: UNK UNK, AS NEEDED
     Route: 061
  3. NYSTATIN. [Concomitant]
     Active Substance: NYSTATIN
     Dosage: UNK UNK, 3X/DAY (1 APPLICATION TOP TID)
     Route: 061
  4. METHOTREXATE SODIUM. [Suspect]
     Active Substance: METHOTREXATE SODIUM
     Dosage: 1.0 ML, WEEKLY
     Route: 058

REACTIONS (4)
  - Sinusitis [Unknown]
  - Fungal infection [Not Recovered/Not Resolved]
  - Drug effect incomplete [Unknown]
  - Rash [Not Recovered/Not Resolved]
